FAERS Safety Report 6290998-1 (Version None)
Quarter: 2009Q3

REPORT INFORMATION
  Report Type: 
  Country: None (occurrence: None)
  Receive Date: 20090730
  Receipt Date: 20071112
  Transmission Date: 20100115
  Serious: Yes (Other)
  Sender: FDA-Public Use
  Company Number: US-ASTRAZENECA-2007UW13906

PATIENT
  Age: 15140 Day
  Sex: Male
  Weight: 91.9 kg

DRUGS (8)
  1. SEROQUEL [Suspect]
     Indication: SLEEP DISORDER
     Dosage: 50MG TO 100MG
     Route: 048
     Dates: start: 20051222
  2. SEROQUEL [Suspect]
     Indication: HALLUCINATION, AUDITORY
     Dosage: 50MG TO 100MG
     Route: 048
     Dates: start: 20051222
  3. ATENOLOL [Concomitant]
     Indication: HYPERTENSION
     Route: 048
     Dates: start: 20050927
  4. CARBAMAZEPINE [Concomitant]
     Indication: CONVULSION
     Route: 048
     Dates: start: 20050927
  5. FLUOXETINE HYDROCHLORIDE [Concomitant]
     Indication: DEPRESSION
     Route: 048
     Dates: start: 20051107
  6. GLYBURIDE [Concomitant]
     Indication: DIABETES MELLITUS
     Route: 048
     Dates: start: 20050927
  7. ASPIRIN [Concomitant]
  8. TRAZODONE HCL [Concomitant]
     Indication: SLEEP DISORDER
     Dosage: 50MG EVERY BEDTIME AS NEEDED
     Route: 048
     Dates: start: 20051128

REACTIONS (4)
  - DIABETIC FOOT [None]
  - DIABETIC NEUROPATHY [None]
  - HYPOGLYCAEMIA [None]
  - TYPE 2 DIABETES MELLITUS [None]
